FAERS Safety Report 6755718-2 (Version None)
Quarter: 2010Q2

REPORT INFORMATION
  Report Type: 
  Country: None (occurrence: None)
  Receive Date: 20100604
  Receipt Date: 20100522
  Transmission Date: 20101027
  Serious: Yes (Hospitalization)
  Sender: FDA-Public Use
  Company Number: US-ELI_LILLY_AND_COMPANY-US201003003102

PATIENT
  Sex: Female
  Weight: 90.703 kg

DRUGS (17)
  1. BYETTA [Suspect]
     Indication: TYPE 2 DIABETES MELLITUS
     Dosage: 5 UG, 3/D
     Route: 058
     Dates: start: 20080101
  2. BYETTA [Suspect]
     Dosage: 10 UG, 2/D
     Route: 058
     Dates: end: 20100306
  3. LANTUS [Concomitant]
     Indication: TYPE 2 DIABETES MELLITUS
     Dosage: 20 U, EACH EVENING
     Dates: start: 20080827, end: 20080829
  4. LANTUS [Concomitant]
     Dosage: 55 U, EACH EVENING
  5. LANTUS [Concomitant]
     Dosage: 40 U, DAILY (1/D)
     Route: 058
  6. CRESTOR [Concomitant]
     Indication: BLOOD CHOLESTEROL
     Dosage: 5 MG, DAILY (1/D)
  7. LOTREL [Concomitant]
     Indication: BLOOD PRESSURE
     Dosage: UNK, DAILY (1/D)
  8. FUROSEMIDE [Concomitant]
     Dosage: 10 MG, 2/D
  9. TOPROL-XL [Concomitant]
     Indication: BLOOD PRESSURE
     Dosage: 100 MG, DAILY (1/D)
  10. AVAPRO [Concomitant]
     Dosage: 300 MG, DAILY (1/D)
  11. LOVAZA [Concomitant]
     Dosage: 1 G, 2/D
  12. URSODIOL [Concomitant]
     Dosage: 100 MG, 4/D
  13. NEXIUM [Concomitant]
     Dosage: 40 MG, DAILY (1/D)
     Dates: end: 20090801
  14. NEXIUM [Concomitant]
     Dosage: 40 MG, 2/D
     Dates: start: 20090801
  15. ASPIRIN [Concomitant]
     Dosage: 325 MG, DAILY (1/D)
  16. CALTRATE 600 + D [Concomitant]
     Dosage: 600 MG, UNK
  17. IRON [Concomitant]
     Dosage: 65 MG, 2/D

REACTIONS (15)
  - ABDOMINAL PAIN UPPER [None]
  - BLOOD GLUCOSE DECREASED [None]
  - BLOOD GLUCOSE INCREASED [None]
  - DRUG INEFFECTIVE [None]
  - DRY SKIN [None]
  - FEELING ABNORMAL [None]
  - FEELING HOT [None]
  - FLUSHING [None]
  - LETHARGY [None]
  - NAUSEA [None]
  - OFF LABEL USE [None]
  - PRURITUS [None]
  - RASH [None]
  - TENDERNESS [None]
  - VOMITING [None]
